FAERS Safety Report 5256432-5 (Version None)
Quarter: 2007Q1

REPORT INFORMATION
  Report Type: 
  Country: None (occurrence: None)
  Receive Date: 20070306
  Receipt Date: 20070220
  Transmission Date: 20070707
  Serious: Yes (Disabling)
  Sender: FDA-Public Use
  Company Number: HQWYE372122FEB07

PATIENT
  Sex: Female
  Weight: 58 kg

DRUGS (5)
  1. ENBREL [Suspect]
     Indication: RHEUMATOID ARTHRITIS
     Route: 058
     Dates: start: 20070111, end: 20070130
  2. CHLOROQUINE [Concomitant]
     Indication: ARTHRITIS
  3. MEDROL [Concomitant]
     Indication: ARTHRITIS
  4. ISONIAZID [Concomitant]
     Indication: PROPHYLAXIS
  5. METHOTREXATE [Concomitant]
     Indication: RHEUMATOID ARTHRITIS

REACTIONS (2)
  - AMAUROSIS [None]
  - INSOMNIA [None]
